FAERS Safety Report 13952055 (Version 1)
Quarter: 2017Q3

REPORT INFORMATION
  Report Type: Spontaneous
  Country: GB (occurrence: GB)
  Receive Date: 20170910
  Receipt Date: 20170910
  Transmission Date: 20171128
  Serious: Yes (Death, Other)
  Sender: FDA-Public Use
  Company Number: GB-009507513-1709GBR001691

PATIENT
  Age: 78 Year
  Sex: Female

DRUGS (1)
  1. CUBICIN [Suspect]
     Active Substance: DAPTOMYCIN
     Indication: RENAL FAILURE
     Dosage: UNK, EVERY OTHER DAY

REACTIONS (14)
  - Carbon dioxide increased [Unknown]
  - Large intestine perforation [Unknown]
  - Abdominal distension [Unknown]
  - Melaena [Unknown]
  - Body temperature increased [Unknown]
  - Muscle twitching [Unknown]
  - Incorrect drug administration rate [Unknown]
  - Muscle spasms [Unknown]
  - Product use in unapproved indication [Unknown]
  - Salivary hypersecretion [Unknown]
  - Chronic obstructive pulmonary disease [Unknown]
  - Hallucination [Unknown]
  - Mood altered [Unknown]
  - Death [Fatal]
